FAERS Safety Report 7120102-9 (Version None)
Quarter: 2010Q4

REPORT INFORMATION
  Report Type: 
  Country: None (occurrence: None)
  Receive Date: 20101123
  Receipt Date: 20101111
  Transmission Date: 20110411
  Serious: Yes (Hospitalization)
  Sender: FDA-Public Use
  Company Number: US-JNJFOC-20101104618

PATIENT
  Sex: Female
  Weight: 54.43 kg

DRUGS (12)
  1. REMICADE [Suspect]
     Indication: RHEUMATOID ARTHRITIS
     Route: 042
  2. CELEBREX [Concomitant]
     Indication: ARTHRITIS
     Route: 048
  3. AMIODARONE [Concomitant]
     Indication: ATRIAL FIBRILLATION
     Route: 048
  4. PREDNISONE [Concomitant]
     Indication: ARTHRITIS
     Route: 048
  5. FOLIC ACID [Concomitant]
     Indication: VITAMIN SUPPLEMENTATION
     Route: 048
  6. VITAMIN D [Concomitant]
     Indication: VITAMIN SUPPLEMENTATION
     Route: 048
  7. PANTOPRAZOLE [Concomitant]
     Indication: GASTROINTESTINAL DISORDER THERAPY
     Route: 048
  8. CALCIUM WITH VITAMIN D [Concomitant]
     Indication: VITAMIN SUPPLEMENTATION
     Dosage: CALCIUM 630 MG IU WITH VITAMIN D 400 MG. IU PER TABLET
     Route: 048
  9. VITAMIN B100 [Concomitant]
     Indication: VITAMIN SUPPLEMENTATION
     Route: 048
  10. LUTEIN [Concomitant]
     Indication: EYE DISORDER
     Route: 048
  11. METHYLSULFONYLMETHANE [Concomitant]
     Indication: ARTHRITIS
     Route: 048
  12. LECITHIN [Concomitant]
     Indication: BLOOD CHOLESTEROL
     Route: 048

REACTIONS (15)
  - ABDOMINAL PAIN [None]
  - CATARACT [None]
  - DECREASED APPETITE [None]
  - DIARRHOEA [None]
  - DIPLOPIA [None]
  - ERYTHEMA [None]
  - FREQUENT BOWEL MOVEMENTS [None]
  - HALLUCINATION, VISUAL [None]
  - HAND DEFORMITY [None]
  - HYPERTENSION [None]
  - PAIN IN EXTREMITY [None]
  - SKIN EXFOLIATION [None]
  - SWELLING [None]
  - URINARY INCONTINENCE [None]
  - WEIGHT INCREASED [None]
